FAERS Safety Report 8012204-X (Version None)
Quarter: 2011Q4

REPORT INFORMATION
  Report Type: 
  Country: None (occurrence: None)
  Receive Date: 20111228
  Receipt Date: 20111221
  Transmission Date: 20120403
  Serious: Yes (Hospitalization, Other)
  Sender: FDA-Public Use
  Company Number: PHHY2011US111266

PATIENT
  Age: 58 Year
  Sex: Male

DRUGS (8)
  1. SERTRALINE HYDROCHLORIDE [Concomitant]
     Dosage: UNK
  2. RABEPRAZOLE SODIUM [Concomitant]
     Dosage: UNK
  3. METOCLOPRAMIDE [Suspect]
     Indication: IMPAIRED GASTRIC EMPTYING
     Dosage: 10 MG, BID
     Route: 048
  4. VENLAFAXINE [Concomitant]
     Dosage: UNK
  5. NEBIVOLOL HCL [Concomitant]
     Dosage: UNK
  6. MESALAMINE [Concomitant]
     Dosage: UNK
  7. VALSARTAN [Concomitant]
     Dosage: UNK
  8. CLINDAMYCIN [Concomitant]
     Dosage: UNK

REACTIONS (22)
  - ABNORMAL BEHAVIOUR [None]
  - LETHARGY [None]
  - CONVULSION [None]
  - MUSCLE RIGIDITY [None]
  - CONFUSIONAL STATE [None]
  - AGITATION [None]
  - RESTLESSNESS [None]
  - DYSARTHRIA [None]
  - TACHYCARDIA [None]
  - PYREXIA [None]
  - CLOSTRIDIUM DIFFICILE COLITIS [None]
  - MENTAL STATUS CHANGES [None]
  - DELUSION [None]
  - MUSCULOSKELETAL STIFFNESS [None]
  - ABDOMINAL TENDERNESS [None]
  - NEUROLEPTIC MALIGNANT SYNDROME [None]
  - FEELING JITTERY [None]
  - HYPOTENSION [None]
  - RENAL FAILURE ACUTE [None]
  - DIARRHOEA [None]
  - METABOLIC ACIDOSIS [None]
  - OVERDOSE [None]
